FAERS Safety Report 7122297-X (Version None)
Quarter: 2010Q4

REPORT INFORMATION
  Report Type: 
  Country: None (occurrence: None)
  Receive Date: 20101124
  Receipt Date: 20101116
  Transmission Date: 20110411
  Serious: Yes (Other)
  Sender: FDA-Public Use
  Company Number: GB-ABBOTT-10P-167-0686020-00

PATIENT
  Age: 40 Year
  Sex: Female

DRUGS (2)
  1. HUMIRA [Suspect]
     Indication: PRODUCT USED FOR UNKNOWN INDICATION
     Dates: start: 20080501
  2. HUMIRA [Suspect]

REACTIONS (4)
  - AMNESIA [None]
  - CONFUSIONAL STATE [None]
  - DEPRESSED MOOD [None]
  - SUICIDAL IDEATION [None]
